FAERS Safety Report 12638599 (Version 3)
Quarter: 2016Q3

REPORT INFORMATION
  Report Type: Spontaneous
  Country: US (occurrence: US)
  Receive Date: 20160809
  Receipt Date: 20160902
  Transmission Date: 20161109
  Serious: Yes (Death, Hospitalization)
  Sender: FDA-Public Use
  Company Number: US-BAUSCH-BL-2016-018775

PATIENT
  Age: 63 Year
  Sex: Male

DRUGS (1)
  1. XIFAXAN [Suspect]
     Active Substance: RIFAXIMIN
     Indication: HEPATIC CIRRHOSIS
     Route: 048
     Dates: start: 201603

REACTIONS (1)
  - Bladder cancer [Fatal]

NARRATIVE: CASE EVENT DATE: 201606
